FAERS Safety Report 7824240-4 (Version None)
Quarter: 2011Q4

REPORT INFORMATION
  Report Type: 
  Country: None (occurrence: None)
  Receive Date: 20111019
  Receipt Date: 20111017
  Transmission Date: 20120403
  Serious: No
  Sender: FDA-Public Use
  Company Number: US-TEVA-305456USA

PATIENT
  Sex: Female
  Weight: 49.032 kg

DRUGS (3)
  1. ASPIRIN [Concomitant]
  2. AZILECT [Suspect]
     Indication: PARKINSON'S DISEASE
     Dosage: .5 MILLIGRAM;
     Route: 048
     Dates: start: 20111010
  3. LOVASTATIN [Concomitant]

REACTIONS (1)
  - MUSCLE SPASMS [None]
